FAERS Safety Report 7000783-0 (Version None)
Quarter: 2010Q3

REPORT INFORMATION
  Report Type: 
  Country: None (occurrence: None)
  Receive Date: 20100920
  Receipt Date: 20100311
  Transmission Date: 20110219
  Serious: Yes (Hospitalization)
  Sender: FDA-Public Use
  Company Number: US-ASTRAZENECA-2007UW18493

PATIENT
  Age: 5409 Day
  Sex: Male
  Weight: 108.9 kg

DRUGS (10)
  1. SEROQUEL [Suspect]
     Indication: BIPOLAR DISORDER
     Route: 048
     Dates: start: 20030429, end: 20030910
  2. SEROQUEL [Suspect]
     Indication: ATTENTION DEFICIT/HYPERACTIVITY DISORDER
     Route: 048
     Dates: start: 20030429, end: 20030910
  3. SEROQUEL [Suspect]
     Dosage: 100 MGS I AM, II HS
     Route: 048
     Dates: start: 20030429
  4. SEROQUEL [Suspect]
     Dosage: 100 MGS I AM, II HS
     Route: 048
     Dates: start: 20030429
  5. HALDOL [Concomitant]
     Dates: start: 20010101
  6. RISPERDAL [Concomitant]
  7. THORAZINE [Concomitant]
  8. ZYPREXA [Concomitant]
  9. CELEXA [Concomitant]
     Dosage: 20 MGS 2 1/2 Q DAY
     Dates: start: 20030429
  10. TRILEPTAL [Concomitant]
     Dates: start: 20030429

REACTIONS (4)
  - BLOOD CHOLESTEROL INCREASED [None]
  - CHEST PAIN [None]
  - OBESITY [None]
  - TYPE 2 DIABETES MELLITUS [None]
